FAERS Safety Report 11583481 (Version 1)
Quarter: 2015Q4

REPORT INFORMATION
  Report Type: Spontaneous
  Country: US (occurrence: US)
  Receive Date: 20151001
  Receipt Date: 20151001
  Transmission Date: 20160304
  Serious: No
  Sender: FDA-Public Use
  Company Number: US-ROCHE-658446

PATIENT
  Age: 39 Year
  Sex: Female

DRUGS (4)
  1. PEGASYS [Suspect]
     Active Substance: PEGINTERFERON ALFA-2A
     Indication: HEPATITIS C
     Route: 058
  2. PEGASYS [Suspect]
     Active Substance: PEGINTERFERON ALFA-2A
     Dosage: FORM: PRE-FILLED SYRINGE
     Route: 058
  3. RIBAVIRIN. [Suspect]
     Active Substance: RIBAVIRIN
     Indication: HEPATITIS C
     Route: 065
  4. RIBAVIRIN. [Suspect]
     Active Substance: RIBAVIRIN
     Dosage: DIVIDED DOSES
     Route: 065

REACTIONS (5)
  - Rash [Unknown]
  - Rash papular [Not Recovered/Not Resolved]
  - Alopecia [Not Recovered/Not Resolved]
  - Anaemia [Unknown]
  - Tooth abscess [Unknown]

NARRATIVE: CASE EVENT DATE: 200908
